FAERS Safety Report 12357499 (Version 1)
Quarter: 2016Q2

REPORT INFORMATION
  Report Type: Spontaneous
  Country: US (occurrence: US)
  Receive Date: 20160511
  Receipt Date: 20160511
  Transmission Date: 20160815
  Serious: Yes (Other)
  Sender: FDA-Public Use
  Company Number: US-AMGEN-USASP2016057476

PATIENT
  Age: 74 Year

DRUGS (1)
  1. SENSIPAR [Suspect]
     Active Substance: CINACALCET HYDROCHLORIDE
     Indication: HYPERTHYROIDISM
     Dosage: UNK
     Route: 048

REACTIONS (4)
  - Hypercalcaemia [Unknown]
  - Off label use [Unknown]
  - Renal impairment [Unknown]
  - Blood parathyroid hormone increased [Unknown]
